FAERS Safety Report 14230424 (Version 1)
Quarter: 2017Q4

REPORT INFORMATION
  Report Type: Spontaneous
  Country: US (occurrence: US)
  Receive Date: 20171128
  Receipt Date: 20171128
  Transmission Date: 20180321
  Serious: Yes (Other)
  Sender: FDA-Public Use
  Company Number: US-PFIZER INC-2017505632

PATIENT
  Age: 26 Week
  Sex: Male
  Weight: 1.09 kg

DRUGS (2)
  1. AMINOPHYLLINE. [Suspect]
     Active Substance: AMINOPHYLLINE
     Indication: INFANTILE APNOEA
     Dosage: 8 MG/KG, UNK
     Route: 042
  2. AMINOPHYLLINE. [Suspect]
     Active Substance: AMINOPHYLLINE
     Dosage: 2 MG/KG, 2X/DAY
     Route: 042

REACTIONS (1)
  - Hyponatraemia [Recovering/Resolving]
